FAERS Safety Report 16706541 (Version 1)
Quarter: 2019Q3

REPORT INFORMATION
  Report Type: Spontaneous
  Country: US (occurrence: US)
  Receive Date: 20190815
  Receipt Date: 20190815
  Transmission Date: 20191004
  Serious: No
  Sender: FDA-Public Use
  Company Number: US-PACIRA-201500064

PATIENT

DRUGS (5)
  1. EXPAREL [Suspect]
     Active Substance: BUPIVACAINE
     Indication: POSTOPERATIVE ANALGESIA
     Dosage: 13.3 MG/KG; 266 MG, SPLIT INTO TWO 10 ML SYRINGES, FREQUENCY : 1X
     Route: 050
  2. CELECOXIB. [Concomitant]
     Active Substance: CELECOXIB
     Indication: PRODUCT USED FOR UNKNOWN INDICATION
     Dosage: 200 MG, BID FOR 3 DAYS, FREQUENCY : BID
  3. LIDOCAINE. [Concomitant]
     Active Substance: LIDOCAINE
     Indication: NERVE BLOCK
     Dosage: 10 ML, 1X, FREQUENCY : 1X
  4. CELECOXIB. [Concomitant]
     Active Substance: CELECOXIB
     Indication: PRODUCT USED FOR UNKNOWN INDICATION
     Dosage: ON THE MORNING OF SURGERY 400 MG, 1X, FREQUENCY : 1X
  5. MARCAINE [Concomitant]
     Active Substance: BUPIVACAINE HYDROCHLORIDE
     Indication: NERVE BLOCK
     Dosage: 15 ML, 1X, FREQUENCY : 1X

REACTIONS (1)
  - Procedural nausea [Recovered/Resolved]
